FAERS Safety Report 8319550 (Version 2)
Quarter: 2013Q4

REPORT INFORMATION
  Report Type: Spontaneous
  Country: US (occurrence: US)
  Receive Date: 20120103
  Receipt Date: 20131105
  Transmission Date: 20140711
  Serious: Yes (Hospitalization)
  Sender: FDA-Public Use
  Company Number: US-GLAXOSMITHKLINE-A0934677A

PATIENT
  Age: 51 Year
  Sex: Male
  Weight: 111.4 kg

DRUGS (2)
  1. AVANDIA [Suspect]
     Indication: DIABETES MELLITUS
     Dosage: 4MG TWICE PER DAY
     Route: 048
     Dates: start: 200501, end: 200702
  2. AVANDAMET [Suspect]
     Indication: DIABETES MELLITUS
     Route: 048
     Dates: start: 200406, end: 200501

REACTIONS (4)
  - Cardiac failure congestive [Unknown]
  - Coronary artery disease [Unknown]
  - Cardiac disorder [Unknown]
  - Ventricular tachycardia [Unknown]
